FAERS Safety Report 9841301 (Version 1)
Quarter: 2013Q4

REPORT INFORMATION
  Report Type: Spontaneous
  Country: US (occurrence: None)
  Receive Date: 20131219
  Receipt Date: 20131219
  Transmission Date: 20140711
  Serious: No
  Sender: FDA-Public Use
  Company Number: 163-20785-09080754

PATIENT
  Sex: Female
  Weight: 82.56 kg

DRUGS (16)
  1. THALOMID [Suspect]
     Indication: PLASMA CELL MYELOMA
     Route: 048
     Dates: start: 20081016, end: 2008
  2. NEXIUM(ESOMEPRAZOLE)(SUSPENSION) [Concomitant]
  3. ATENOLOL(ATENOLOL)(TABLETS) [Concomitant]
  4. ZOCOR(SIMVASTATIN)(TABLETS) [Concomitant]
  5. CLARITIN(LORATADINE) [Concomitant]
  6. DECADRON(DEXAMETHASONE)(TABLETS) [Concomitant]
  7. BUMEX(BUMETANIDE) [Concomitant]
  8. ZAROXYLON(METOLAZONE) [Concomitant]
  9. ACYCLOVIR(ACICLOVIR)(CAPSULES) [Concomitant]
  10. NEURONTIN(GABAPENTIN)(CAPSULES) [Concomitant]
  11. POTASSIUM(POTASSIUM)(TABLETS) [Concomitant]
  12. TRAMADOL HCL (TRAMADOL HYDROCHLORIDE)(TABLETS) [Concomitant]
  13. VELCADE(BORTEZOMIB)(INJECTION) [Concomitant]
  14. ZANTAC(RANITIDINE HYDROCHLORIDE)(CAPSULES) [Concomitant]
  15. REVLIMID(LENALIDOMIDE)(CAPSULES) [Concomitant]
  16. ZOMET(ZOLEDRONIC ACID) [Concomitant]

REACTIONS (7)
  - Gastrointestinal haemorrhage [None]
  - Swelling face [None]
  - Neuropathy peripheral [None]
  - Sensory loss [None]
  - Constipation [None]
  - Local swelling [None]
  - Pain in extremity [None]
